FAERS Safety Report 17373830 (Version 2)
Quarter: 2020Q2

REPORT INFORMATION
  Report Type: Report from Study
  Country: US (occurrence: US)
  Receive Date: 20200205
  Receipt Date: 20200526
  Transmission Date: 20200713
  Serious: Yes (Other)
  Sender: FDA-Public Use
  Company Number: NVSC2019US047790

PATIENT
  Sex: Male

DRUGS (1)
  1. GILENYA [Suspect]
     Active Substance: FINGOLIMOD HYDROCHLORIDE
     Indication: MULTIPLE SCLEROSIS
     Dosage: 0.5 MG, QD
     Route: 048
     Dates: start: 20161229

REACTIONS (8)
  - Syncope [Unknown]
  - Dizziness [Unknown]
  - Gait disturbance [Unknown]
  - Depression [Unknown]
  - Band sensation [Unknown]
  - Headache [Unknown]
  - Nasal septum deviation [Unknown]
  - Balance disorder [Unknown]
